FAERS Safety Report 4451968-9 (Version None)
Quarter: 2004Q3

REPORT INFORMATION
  Report Type: 
  Country: None (occurrence: None)
  Receive Date: 20040917
  Receipt Date: 20040906
  Transmission Date: 20050211
  Serious: Yes (Other)
  Sender: FDA-Public Use
  Company Number: JP-JNJFOC-20040605697

PATIENT
  Sex: Male

DRUGS (16)
  1. FENTANYL [Suspect]
     Indication: CANCER PAIN
     Route: 062
     Dates: start: 20040513
  2. DOCETAXEL HYDRATE [Suspect]
     Route: 041
  3. NEDAPLATIN [Suspect]
     Route: 041
     Dates: start: 20040514, end: 20040518
  4. FLUOROURACIL [Suspect]
     Route: 041
  5. SODIUM PICOSULFATE [Concomitant]
     Indication: CONSTIPATION
     Route: 049
  6. HYDROCORTISONE SODIUM SUCCINATE [Concomitant]
     Indication: NAUSEA
     Route: 042
  7. GRANISETRON HYDROCHLORIDE [Concomitant]
     Indication: NAUSEA
     Route: 041
     Dates: start: 20040514, end: 20040518
  8. MORPHINE HYDROCHLORIDE [Concomitant]
     Route: 054
     Dates: start: 20040516, end: 20040523
  9. MORPHINE HYDROCHLORIDE [Concomitant]
     Route: 054
     Dates: start: 20040516, end: 20040523
  10. MORPHINE HYDROCHLORIDE [Concomitant]
     Route: 054
     Dates: start: 20040516, end: 20040523
  11. MORPHINE HYDROCHLORIDE [Concomitant]
     Route: 054
     Dates: start: 20040516, end: 20040523
  12. MORPHINE HYDROCHLORIDE [Concomitant]
     Indication: CANCER PAIN
     Route: 054
     Dates: start: 20040516, end: 20040523
  13. CARBOCISTEINE [Concomitant]
     Route: 049
  14. ELASE [Concomitant]
     Route: 065
  15. ELASE [Concomitant]
     Indication: STOMATITIS
     Route: 065
  16. IRSOGLADINE MALEATE [Concomitant]
     Indication: GASTRIC ULCER
     Route: 049
     Dates: start: 20040519

REACTIONS (2)
  - WHITE BLOOD CELL COUNT DECREASED [None]
  - WHITE BLOOD CELL COUNT INCREASED [None]
